FAERS Safety Report 18794540 (Version 2)
Quarter: 2021Q1

REPORT INFORMATION
  Report Type: Spontaneous
  Country: US (occurrence: US)
  Receive Date: 20210127
  Receipt Date: 20210210
  Transmission Date: 20210419
  Serious: Yes (Other)
  Sender: FDA-Public Use
  Company Number: US-BAYER-2021-030044

PATIENT
  Age: 33 Year
  Sex: Female

DRUGS (2)
  1. KOVALTRY [Suspect]
     Active Substance: ANTIHEMOPHILIC FACTOR, HUMAN RECOMBINANT
     Dosage: 6 DOSES AFTER SURGERY ON LEFT KNEE
     Route: 042
     Dates: start: 20210108
  2. KOVALTRY [Suspect]
     Active Substance: ANTIHEMOPHILIC FACTOR, HUMAN RECOMBINANT
     Dosage: 6000 U
     Route: 042

REACTIONS (3)
  - Knee operation [None]
  - Joint stiffness [None]
  - Joint swelling [None]

NARRATIVE: CASE EVENT DATE: 202101
